FAERS Safety Report 6061898-7 (Version None)
Quarter: 2009Q1

REPORT INFORMATION
  Report Type: 
  Country: None (occurrence: None)
  Receive Date: 20090202
  Receipt Date: 20090126
  Transmission Date: 20090719
  Serious: Yes (Other)
  Sender: FDA-Public Use
  Company Number: PHHY2009MX03008

PATIENT
  Sex: Female

DRUGS (5)
  1. EXFORGE [Suspect]
     Indication: HYPERTENSION
     Dosage: 1 DF, QD
     Route: 048
     Dates: start: 20090101
  2. INSOGEN PLUS [Concomitant]
     Dosage: 2 DF, QD
  3. LIPIDIL [Concomitant]
     Indication: BLOOD CHOLESTEROL INCREASED
  4. HYDROCHLOROTHIAZIDE [Concomitant]
  5. MELATONIN [Concomitant]
     Indication: SLEEP DISORDER

REACTIONS (1)
  - HYPERTENSION [None]
